FAERS Safety Report 7304018-0 (Version None)
Quarter: 2011Q1

REPORT INFORMATION
  Report Type: 
  Country: None (occurrence: None)
  Receive Date: 20110221
  Receipt Date: 20110207
  Transmission Date: 20110831
  Serious: Yes (Other)
  Sender: FDA-Public Use
  Company Number: FR-MERCK-1102FRA00044

PATIENT
  Age: 10 Year
  Sex: Male

DRUGS (1)
  1. SINGULAIR [Suspect]
     Indication: ASTHMA
     Route: 048
     Dates: start: 20070401, end: 20101222

REACTIONS (3)
  - NIGHTMARE [None]
  - HALLUCINATION [None]
  - SUICIDAL IDEATION [None]
